FAERS Safety Report 7708505-2 (Version None)
Quarter: 2011Q3

REPORT INFORMATION
  Report Type: 
  Country: None (occurrence: None)
  Receive Date: 20110824
  Receipt Date: 20110824
  Transmission Date: 20111222
  Serious: No
  Sender: FDA-Public Use
  Company Number: None

PATIENT
  Sex: Male
  Weight: 74.8435 kg

DRUGS (2)
  1. ZOCOR [Suspect]
  2. CRESTOR [Suspect]

REACTIONS (4)
  - ARTHRALGIA [None]
  - NECK PAIN [None]
  - MYALGIA [None]
  - PAIN IN EXTREMITY [None]
